FAERS Safety Report 24400963 (Version 2)
Quarter: 2024Q4

REPORT INFORMATION
  Report Type: Spontaneous
  Country: IT (occurrence: IT)
  Receive Date: 20241006
  Receipt Date: 20241008
  Transmission Date: 20250115
  Serious: Yes (Hospitalization)
  Sender: JOHNSON AND JOHNSON
  Company Number: None

PATIENT
  Age: 82 Year
  Sex: Female
  Weight: 75 kg

DRUGS (12)
  1. XARELTO [Suspect]
     Active Substance: RIVAROXABAN
     Indication: Atrial fibrillation
     Dosage: RIVAROXABAN 10 MG
     Route: 048
     Dates: start: 202305, end: 20240701
  2. CITALOPRAM [Concomitant]
     Active Substance: CITALOPRAM
     Indication: Agitation
     Route: 048
  3. POTASSIUM BICARBONATE\SODIUM ALGINATE [Concomitant]
     Active Substance: POTASSIUM BICARBONATE\SODIUM ALGINATE
     Indication: Gastritis
     Route: 048
  4. PANTOPRAZOLE SODIUM [Concomitant]
     Active Substance: PANTOPRAZOLE SODIUM
     Indication: Gastritis
     Route: 048
  5. LEVOTHYROXINE SODIUM [Concomitant]
     Active Substance: LEVOTHYROXINE SODIUM
     Indication: Hypothyroidism
     Route: 048
  6. ALLOPURINOL [Concomitant]
     Active Substance: ALLOPURINOL
     Indication: Blood uric acid increased
     Route: 048
  7. RAMIPRIL [Concomitant]
     Active Substance: RAMIPRIL
     Indication: Hypertension
     Dosage: ONLY IF BLOOD PRESSURE } 130/80
     Route: 048
  8. POTASSIUM CHLORIDE [Concomitant]
     Active Substance: POTASSIUM CHLORIDE
     Indication: Hypokalaemia
     Route: 048
  9. FUROSEMIDE [Concomitant]
     Active Substance: FUROSEMIDE
     Indication: Hypertension
  10. VERAPAMIL [Concomitant]
     Active Substance: VERAPAMIL HYDROCHLORIDE
     Indication: Hypertension
     Route: 048
     Dates: start: 2022
  11. AMIODARONE [Concomitant]
     Active Substance: AMIODARONE
     Indication: Arrhythmia
     Route: 048
  12. SIMVASTATIN [Concomitant]
     Active Substance: SIMVASTATIN
     Indication: Hypercholesterolaemia
     Route: 048

REACTIONS (2)
  - Vomiting [Recovering/Resolving]
  - Rectal haemorrhage [Recovering/Resolving]

NARRATIVE: CASE EVENT DATE: 20240701
